FAERS Safety Report 25873459 (Version 2)
Quarter: 2025Q4

REPORT INFORMATION
  Report Type: Spontaneous
  Country: CA (occurrence: CA)
  Receive Date: 20251002
  Receipt Date: 20251203
  Transmission Date: 20260117
  Serious: Yes (Other)
  Sender: PFIZER
  Company Number: CA-PFIZER INC-202500194893

PATIENT
  Age: 48 Year
  Sex: Male
  Weight: 104 kg

DRUGS (3)
  1. IXIFI [Suspect]
     Active Substance: INFLIXIMAB-QBTX
     Indication: Crohn^s disease
     Dosage: 10 MG/KG, EVERY 8 WEEK
     Route: 042
     Dates: start: 20250806
  2. IXIFI [Suspect]
     Active Substance: INFLIXIMAB-QBTX
     Dosage: 1000 MG, AFTER 7 WEEKS AND 5 DAYS (10 MG/KG, EVERY 8 WEEKS)
     Route: 042
     Dates: start: 20250929
  3. IXIFI [Suspect]
     Active Substance: INFLIXIMAB-QBTX
     Dosage: 1060 MG AFTER 8 WEEKS (10 MG/KG, EVERY 8 WEEKS)
     Route: 042
     Dates: start: 20251124

REACTIONS (4)
  - Muscle rupture [Recovering/Resolving]
  - Blood pressure increased [Not Recovered/Not Resolved]
  - Condition aggravated [Not Recovered/Not Resolved]
  - Muscular weakness [Not Recovered/Not Resolved]

NARRATIVE: CASE EVENT DATE: 20250901
